FAERS Safety Report 5980680-X (Version None)
Quarter: 2008Q4

REPORT INFORMATION
  Report Type: 
  Country: None (occurrence: None)
  Receive Date: 20081205
  Receipt Date: 20080310
  Transmission Date: 20090506
  Serious: No
  Sender: FDA-Public Use
  Company Number: A0714233A

PATIENT
  Age: 71 Year
  Sex: Female

DRUGS (5)
  1. COMMIT [Suspect]
     Dates: start: 20080222, end: 20080306
  2. NICORETTE [Suspect]
  3. LISINOPRIL [Concomitant]
  4. GLIPIZIDE [Concomitant]
  5. XANAX [Concomitant]

REACTIONS (1)
  - NICOTINE DEPENDENCE [None]
